FAERS Safety Report 23833307 (Version 2)
Quarter: 2024Q2

REPORT INFORMATION
  Report Type: Spontaneous
  Country: US (occurrence: US)
  Receive Date: 20240508
  Receipt Date: 20240611
  Transmission Date: 20240716
  Serious: Yes (Other)
  Sender: FDA-Public Use
  Company Number: US-ORGANON-O2405USA000434

PATIENT
  Sex: Female
  Weight: 74.8 kg

DRUGS (1)
  1. NEXPLANON [Suspect]
     Active Substance: ETONOGESTREL
     Indication: Contraception
     Dosage: 1 IMPLANT (68 MG) (LEFT ARM)
     Route: 059
     Dates: start: 20240301, end: 20240503

REACTIONS (5)
  - Device dislocation [Recovered/Resolved]
  - Medical device site discomfort [Recovered/Resolved]
  - Implant site pain [Recovered/Resolved]
  - Weight decreased [Unknown]
  - Limb discomfort [Unknown]

NARRATIVE: CASE EVENT DATE: 20240101
